FAERS Safety Report 22826524 (Version 2)
Quarter: 2023Q4

REPORT INFORMATION
  Report Type: Spontaneous
  Country: US (occurrence: US)
  Receive Date: 20230816
  Receipt Date: 20231017
  Transmission Date: 20240110
  Serious: Yes (Other)
  Sender: FDA-Public Use
  Company Number: US-SA-SAC20230814000838

PATIENT
  Age: 48 Year
  Sex: Female
  Weight: 79.3 kg

DRUGS (1)
  1. DUPIXENT [Suspect]
     Active Substance: DUPILUMAB
     Indication: Dermatitis atopic
     Dosage: 300 MG, QOW
     Route: 058
     Dates: end: 20230721

REACTIONS (3)
  - Brain neoplasm benign [Unknown]
  - Seizure [Unknown]
  - Unresponsive to stimuli [Unknown]
